FAERS Safety Report 7391749-X (Version None)
Quarter: 2011Q2

REPORT INFORMATION
  Report Type: 
  Country: None (occurrence: None)
  Receive Date: 20110404
  Receipt Date: 20110329
  Transmission Date: 20111010
  Serious: Yes (Hospitalization)
  Sender: FDA-Public Use
  Company Number: BR-ROCHE-552549

PATIENT
  Sex: Female
  Weight: 80 kg

DRUGS (11)
  1. TOCILIZUMAB [Suspect]
     Dosage: FREQUENCY REPORTED AS Q4S.
     Route: 042
     Dates: start: 20080108
  2. METOTREXATO [Concomitant]
     Dosage: TDD REPORTED AS 7.5 MG BIS.
     Dates: start: 20051124, end: 20071113
  3. OMEPRAZOLE [Concomitant]
     Dates: start: 20070919
  4. TOCILIZUMAB [Suspect]
     Route: 042
  5. DICLOFENAC [Concomitant]
     Dates: start: 20050210
  6. HYDROCHLOROTHIAZIDE [Concomitant]
  7. TOCILIZUMAB [Suspect]
     Indication: RHEUMATOID ARTHRITIS
     Dosage: FREQUENCY REPORTED AS Q4S.
     Route: 042
     Dates: start: 20070821, end: 20071113
  8. FOLIC ACID [Concomitant]
     Dosage: TDD REPORTED AS 5 MG QS.
     Dates: start: 20060530
  9. METFORMIN HYDROCHLORIDE [Concomitant]
     Dates: start: 20070901
  10. NIFEDIPINE [Concomitant]
     Dates: start: 20070701
  11. PREDNISONE [Concomitant]
     Dates: start: 20070425

REACTIONS (1)
  - WOUND DEHISCENCE [None]
